FAERS Safety Report 8651212 (Version 3)
Quarter: 2013Q2

REPORT INFORMATION
  Report Type: Spontaneous
  Country: CA (occurrence: None)
  Receive Date: 20120622
  Receipt Date: 20130529
  Transmission Date: 20140414
  Serious: Yes (Death)
  Sender: FDA-Public Use
  Company Number: 2012000142

PATIENT
  Age: 51 Year
  Sex: Female
  Weight: 78.2 kg

DRUGS (1)
  1. ACEON [Suspect]
     Indication: HYPERTENSION
     Dosage: 8 MG, QD, ORAL
     Route: 048
     Dates: start: 20120419, end: 20120510

REACTIONS (7)
  - Sudden cardiac death [None]
  - Fall [None]
  - Blood pressure increased [None]
  - Bundle branch block left [None]
  - Ventricular hypertrophy [None]
  - Electrocardiogram QT prolonged [None]
  - Acute myocardial infarction [None]
